FAERS Safety Report 18933404 (Version 2)
Quarter: 2021Q3

REPORT INFORMATION
  Report Type: Spontaneous
  Country: US (occurrence: US)
  Receive Date: 20210224
  Receipt Date: 20210910
  Transmission Date: 20211014
  Serious: Yes (Other)
  Sender: FDA-Public Use
  Company Number: US-GILEAD-2021-0517979

PATIENT
  Age: 50 Year
  Sex: Female
  Weight: 90.25 kg

DRUGS (18)
  1. ATRIPLA [Suspect]
     Active Substance: EFAVIRENZ\EMTRICITABINE\TENOFOVIR DISOPROXIL FUMARATE
     Indication: HIV INFECTION
     Dosage: UNK
     Route: 048
     Dates: start: 2003
  2. ATORVASTATIN [Concomitant]
     Active Substance: ATORVASTATIN
  3. CYANOCOBALAMIN. [Concomitant]
     Active Substance: CYANOCOBALAMIN
  4. DESONIDE. [Concomitant]
     Active Substance: DESONIDE
  5. MECLIZINE HCL [Concomitant]
     Active Substance: MECLIZINE HYDROCHLORIDE
  6. TIVICAY [Concomitant]
     Active Substance: DOLUTEGRAVIR SODIUM
  7. GABAPENTIN. [Concomitant]
     Active Substance: GABAPENTIN
  8. MELOXICAM. [Concomitant]
     Active Substance: MELOXICAM
  9. ATRIPLA [Suspect]
     Active Substance: EFAVIRENZ\EMTRICITABINE\TENOFOVIR DISOPROXIL FUMARATE
     Dosage: UNK
     Route: 065
     Dates: start: 2010, end: 2016
  10. ESTRADIOL. [Concomitant]
     Active Substance: ESTRADIOL
  11. LISINOPRIL. [Concomitant]
     Active Substance: LISINOPRIL
  12. TYLENOL [Concomitant]
     Active Substance: ACETAMINOPHEN
  13. LEVOTHYROXINE. [Concomitant]
     Active Substance: LEVOTHYROXINE
  14. VIREAD [Suspect]
     Active Substance: TENOFOVIR DISOPROXIL FUMARATE
     Indication: HIV INFECTION
     Dosage: UNK
     Route: 048
     Dates: start: 2003
  15. PROGESTERONE. [Concomitant]
     Active Substance: PROGESTERONE
  16. VIREAD [Suspect]
     Active Substance: TENOFOVIR DISOPROXIL FUMARATE
     Dosage: UNK
     Route: 065
     Dates: start: 200205, end: 200408
  17. DESCOVY [Concomitant]
     Active Substance: EMTRICITABINE\TENOFOVIR ALAFENAMIDE FUMARATE
  18. TRIZIVIR [Concomitant]
     Active Substance: ABACAVIR SULFATE\LAMIVUDINE\ZIDOVUDINE

REACTIONS (11)
  - Pain [Not Recovered/Not Resolved]
  - Gait disturbance [Not Recovered/Not Resolved]
  - Anhedonia [Not Recovered/Not Resolved]
  - Lumbar spinal stenosis [Unknown]
  - Wrist fracture [Unknown]
  - Osteopenia [Not Recovered/Not Resolved]
  - Upper limb fracture [Unknown]
  - Osteoporosis [Unknown]
  - Emotional distress [Not Recovered/Not Resolved]
  - Bone density decreased [Not Recovered/Not Resolved]
  - Anxiety [Not Recovered/Not Resolved]

NARRATIVE: CASE EVENT DATE: 2012
